FAERS Safety Report 9425496 (Version 1)
Quarter: 2013Q3

REPORT INFORMATION
  Report Type: Spontaneous
  Country: US (occurrence: US)
  Receive Date: 20130729
  Receipt Date: 20130729
  Transmission Date: 20140515
  Serious: Yes (Other)
  Sender: FDA-Public Use
  Company Number: CHPA2013US011683

PATIENT
  Age: 60 Year
  Sex: Female

DRUGS (2)
  1. TAVIST ALLERGY (FORMERLY TAVIST-1) TABS [Suspect]
     Indication: PROPHYLAXIS
     Dosage: 1 DF, UNK
     Route: 048
     Dates: end: 20130722
  2. Z-PAK [Concomitant]
     Indication: WOUND INFECTION
     Dosage: UNK, UNK

REACTIONS (3)
  - Wound infection [Recovering/Resolving]
  - Expired drug administered [Unknown]
  - Off label use [Unknown]
